FAERS Safety Report 6811129-2 (Version None)
Quarter: 2010Q2

REPORT INFORMATION
  Report Type: 
  Country: None (occurrence: None)
  Receive Date: 20100630
  Receipt Date: 20090420
  Transmission Date: 20101027
  Serious: No
  Sender: FDA-Public Use
  Company Number: US-PFIZER INC-2009195529

PATIENT
  Sex: Male
  Weight: 115 kg

DRUGS (9)
  1. NICOTROL [Suspect]
     Indication: SMOKING CESSATION THERAPY
     Dosage: UNK
     Dates: start: 20090401
  2. WELLBUTRIN [Concomitant]
  3. XANAX [Concomitant]
  4. NAVANE [Concomitant]
  5. GEODON [Concomitant]
  6. COGENTIN [Concomitant]
  7. PRAVASTATIN [Concomitant]
  8. AMLODIPINE [Concomitant]
  9. BENICAR [Concomitant]
     Dosage: UNK

REACTIONS (1)
  - EUPHORIC MOOD [None]
